FAERS Safety Report 6976281-7 (Version None)
Quarter: 2010Q3

REPORT INFORMATION
  Report Type: 
  Country: None (occurrence: None)
  Receive Date: 20100910
  Receipt Date: 20100901
  Transmission Date: 20110219
  Serious: Yes (Hospitalization)
  Sender: FDA-Public Use
  Company Number: GB-SANOFI-AVENTIS-2010SA042410

PATIENT
  Age: 79 Year
  Sex: Male

DRUGS (12)
  1. RAMIPRIL [Suspect]
     Indication: HYPERTENSION
     Route: 048
  2. RAMIPRIL [Suspect]
     Indication: LEFT VENTRICULAR FAILURE
     Route: 048
  3. FRUSEMIDE [Suspect]
     Indication: FLUID OVERLOAD
     Route: 048
  4. METFORMIN [Suspect]
     Route: 048
  5. ATORVASTATIN [Suspect]
     Indication: HYPERCHOLESTEROLAEMIA
     Route: 048
     Dates: end: 20100712
  6. BENDROFLUMETHIAZIDE [Suspect]
     Route: 048
  7. OXYCONTIN [Suspect]
     Indication: PHANTOM PAIN
     Route: 048
  8. OXYCODONE HCL [Suspect]
     Indication: BREAKTHROUGH PAIN
     Route: 048
     Dates: end: 20100712
  9. ASPIRIN [Concomitant]
  10. ACETAMINOPHEN [Concomitant]
  11. PREGABALIN [Concomitant]
  12. DOXYCYCLINE [Concomitant]

REACTIONS (5)
  - BLOOD CREATINE PHOSPHOKINASE INCREASED [None]
  - MIOSIS [None]
  - NARCOTIC INTOXICATION [None]
  - RENAL FAILURE ACUTE [None]
  - SOMNOLENCE [None]
